FAERS Safety Report 7249833-7 (Version None)
Quarter: 2011Q1

REPORT INFORMATION
  Report Type: 
  Country: None (occurrence: None)
  Receive Date: 20110128
  Receipt Date: 20100524
  Transmission Date: 20110831
  Serious: Yes (Other)
  Sender: FDA-Public Use
  Company Number: A0861041A

PATIENT
  Age: 52 Year
  Sex: Female

DRUGS (6)
  1. WELLBUTRIN XL [Suspect]
     Indication: DEPRESSION
     Dosage: 150MG PER DAY
     Route: 048
  2. HYDROCHLOROTHIAZIDE [Concomitant]
     Dosage: 25MG PER DAY
     Route: 048
  3. SIMVASTATIN [Concomitant]
     Dosage: 80MG PER DAY
     Route: 048
  4. EFFEXOR [Concomitant]
     Dosage: 150MG TWICE PER DAY
     Route: 048
  5. LEVOTHYROXINE SODIUM [Concomitant]
     Dosage: 50MCG PER DAY
     Route: 048
  6. BUPROPION HCL [Suspect]
     Indication: DEPRESSION
     Dosage: 150MG PER DAY
     Route: 048
     Dates: start: 20090101

REACTIONS (5)
  - DEPRESSION [None]
  - RASH [None]
  - ILL-DEFINED DISORDER [None]
  - SUICIDAL IDEATION [None]
  - DRUG INEFFECTIVE [None]
